FAERS Safety Report 20756512 (Version 1)
Quarter: 2022Q2

REPORT INFORMATION
  Report Type: Spontaneous
  Country: US (occurrence: US)
  Receive Date: 20220427
  Receipt Date: 20220427
  Transmission Date: 20220721
  Serious: Yes (Other)
  Sender: FDA-Public Use
  Company Number: US-TAKEDA-2022TUS026722

PATIENT
  Age: 55 Year
  Sex: Female

DRUGS (4)
  1. LISDEXAMFETAMINE DIMESYLATE [Suspect]
     Active Substance: LISDEXAMFETAMINE DIMESYLATE
     Indication: Binge eating
     Dosage: 40 MILLIGRAM
     Route: 065
  2. LISDEXAMFETAMINE DIMESYLATE [Suspect]
     Active Substance: LISDEXAMFETAMINE DIMESYLATE
     Indication: Decreased appetite
  3. PHENTERMINE [Suspect]
     Active Substance: PHENTERMINE
     Indication: Binge eating
     Dosage: 37.5 MILLIGRAM
     Route: 065
  4. PHENTERMINE [Suspect]
     Active Substance: PHENTERMINE
     Indication: Decreased appetite

REACTIONS (2)
  - Stress cardiomyopathy [Recovered/Resolved]
  - Drug interaction [Unknown]
